FAERS Safety Report 13467141 (Version 5)
Quarter: 2019Q2

REPORT INFORMATION
  Report Type: Report from Study
  Country: US (occurrence: US)
  Receive Date: 20170421
  Receipt Date: 20190415
  Transmission Date: 20190711
  Serious: Yes (Hospitalization, Congenital Anomaly)
  Sender: FDA-Public Use
  Company Number: US-UCBSA-2017014930

PATIENT
  Age: 0 Year
  Sex: Male
  Weight: 4 kg

DRUGS (5)
  1. BABY ASPIRIN [Concomitant]
     Active Substance: ASPIRIN
     Indication: THROMBOSIS PROPHYLAXIS
     Dosage: 81 MG, ONCE DAILY (QD)
     Route: 064
     Dates: start: 20160301, end: 20160615
  2. CERTOLIZUMAB PEGOL RA [Suspect]
     Active Substance: CERTOLIZUMAB PEGOL
     Indication: RHEUMATOID ARTHRITIS
     Dosage: 400 MG, UNK
     Route: 064
     Dates: start: 20151208, end: 20160801
  3. PLAQUENIL [Concomitant]
     Active Substance: HYDROXYCHLOROQUINE SULFATE
     Indication: RHEUMATOID ARTHRITIS
     Dosage: 1 DF, ONCE DAILY (QD)
     Route: 064
     Dates: start: 20151208, end: 20160825
  4. PRENATAL VITAMINS [Concomitant]
     Active Substance: VITAMINS
     Indication: PRODUCT USED FOR UNKNOWN INDICATION
     Dosage: 1 DF, ONCE DAILY (QD)
     Route: 064
     Dates: start: 20151208, end: 20160825
  5. FLU [Concomitant]
     Active Substance: INFLUENZA VIRUS VACCINE
     Indication: IMMUNISATION
     Dosage: 1 DF, TOTAL
     Route: 064
     Dates: start: 20160301, end: 20160331

REACTIONS (5)
  - Pulmonary artery stenosis congenital [Recovered/Resolved]
  - Respiratory syncytial virus bronchiolitis [Unknown]
  - Atrial septal defect [Not Recovered/Not Resolved]
  - Maternal exposure during pregnancy [Unknown]
  - Pulmonary valve stenosis [Not Recovered/Not Resolved]

NARRATIVE: CASE EVENT DATE: 20151208
